FAERS Safety Report 6827538-1 (Version None)
Quarter: 2010Q3

REPORT INFORMATION
  Report Type: 
  Country: None (occurrence: None)
  Receive Date: 20100709
  Receipt Date: 20070116
  Transmission Date: 20110219
  Serious: No
  Sender: FDA-Public Use
  Company Number: US-PFIZER INC-2007005351

PATIENT
  Sex: Female
  Weight: 58.97 kg

DRUGS (4)
  1. CHANTIX [Suspect]
     Indication: SMOKING CESSATION THERAPY
     Dates: start: 20070110
  2. TOPROL-XL [Concomitant]
  3. SYNTHROID [Concomitant]
  4. PLAVIX [Concomitant]

REACTIONS (6)
  - ABDOMINAL DISCOMFORT [None]
  - DECREASED APPETITE [None]
  - DRUG ADMINISTRATION ERROR [None]
  - NAUSEA [None]
  - POOR QUALITY SLEEP [None]
  - RETCHING [None]
